FAERS Safety Report 5890285-7 (Version None)
Quarter: 2008Q3

REPORT INFORMATION
  Report Type: 
  Country: None (occurrence: None)
  Receive Date: 20080919
  Receipt Date: 20080909
  Transmission Date: 20090109
  Serious: Yes (Hospitalization)
  Sender: FDA-Public Use
  Company Number: US-VALEANT-2008VX001822

PATIENT
  Age: 70 Year
  Sex: Male
  Weight: 83 kg

DRUGS (6)
  1. MESTINON [Suspect]
     Indication: MYASTHENIA GRAVIS
     Route: 048
     Dates: start: 20070101
  2. LOMOTIL [Suspect]
     Route: 065
     Dates: end: 20080830
  3. VENOGLOBULIN [Suspect]
     Indication: MYASTHENIA GRAVIS
     Route: 042
     Dates: start: 20080803, end: 20080807
  4. PREDNISONE [Concomitant]
     Route: 065
     Dates: start: 20080701
  5. NEOSTIGMINE [Concomitant]
     Route: 065
  6. VITAMIN TAB [Concomitant]
     Route: 065

REACTIONS (10)
  - ANOREXIA [None]
  - ASTHENIA [None]
  - DIARRHOEA [None]
  - DISEASE PROGRESSION [None]
  - DYSPHAGIA [None]
  - MYASTHENIA GRAVIS [None]
  - NO THERAPEUTIC RESPONSE [None]
  - OVERDOSE [None]
  - VISION BLURRED [None]
  - WEIGHT DECREASED [None]
